FAERS Safety Report 7116719-8 (Version None)
Quarter: 2010Q4

REPORT INFORMATION
  Report Type: 
  Country: None (occurrence: None)
  Receive Date: 20101122
  Receipt Date: 20101110
  Transmission Date: 20110411
  Serious: Yes (Death, Hospitalization)
  Sender: FDA-Public Use
  Company Number: JP-BRISTOL-MYERS SQUIBB COMPANY-15393853

PATIENT
  Age: 51 Year
  Sex: Male

DRUGS (5)
  1. CISPLATIN [Suspect]
     Indication: NASOPHARYNGEAL CANCER
     Dosage: 50MG/M2,75MG/BODY
     Route: 041
     Dates: start: 19821207
  2. BLEOMYCIN SULFATE [Suspect]
     Indication: NASOPHARYNGEAL CANCER
     Dosage: INJ,3.3MG/M2,5MG/BODY
     Route: 058
     Dates: start: 19821209, end: 19821213
  3. FLUOROURACIL [Suspect]
  4. DEXAMETHASONE [Concomitant]
     Indication: STOMATITIS
     Dosage: INJ
     Route: 042
  5. VITAMIN A [Concomitant]

REACTIONS (2)
  - ENCEPHALITIS HERPES [None]
  - INAPPROPRIATE ANTIDIURETIC HORMONE SECRETION [None]
